FAERS Safety Report 5287955-0 (Version None)
Quarter: 2007Q2

REPORT INFORMATION
  Report Type: 
  Country: None (occurrence: None)
  Receive Date: 20070405
  Receipt Date: 20070328
  Transmission Date: 20071010
  Serious: Yes (Life-Threatening)
  Sender: FDA-Public Use
  Company Number: US-JNJFOC-20070307122

PATIENT
  Sex: Female
  Weight: 86.18 kg

DRUGS (13)
  1. FENTANYL TRANSDERMAL SYSTEM [Suspect]
     Indication: PAIN
     Route: 062
  2. WELLBUTRIN XL [Concomitant]
     Indication: DEPRESSION
     Route: 048
  3. LEVOTHYROXINE SODIUM [Concomitant]
     Indication: HYPOTHYROIDISM
     Route: 048
  4. LIPITOR [Concomitant]
     Indication: BLOOD CHOLESTEROL INCREASED
     Route: 048
  5. PLAVIX [Concomitant]
     Indication: CARDIAC DISORDER
     Route: 048
  6. ATENOLOL [Concomitant]
     Indication: TACHYCARDIA
     Route: 048
  7. PHENERGAN HCL [Concomitant]
     Indication: NAUSEA
     Route: 048
  8. PHENERGAN HCL [Concomitant]
     Indication: VOMITING
     Route: 054
  9. ACIPHEX [Concomitant]
     Indication: OESOPHAGITIS
     Route: 048
  10. LASIX [Concomitant]
     Indication: PERICARDIAL EFFUSION
     Route: 048
  11. AMBIEN [Concomitant]
     Indication: SLEEP DISORDER
     Route: 048
  12. XANAX [Concomitant]
     Indication: PANIC ATTACK
     Route: 048
  13. OXYCODONE HCL [Concomitant]
     Indication: PAIN
     Route: 048

REACTIONS (6)
  - CHEST DISCOMFORT [None]
  - ENDOTRACHEAL INTUBATION COMPLICATION [None]
  - HYPERTENSION [None]
  - PNEUMONIA ASPIRATION [None]
  - RESPIRATORY ARREST [None]
  - VENTRICULAR EXTRASYSTOLES [None]
